FAERS Safety Report 5532099-3 (Version None)
Quarter: 2007Q4

REPORT INFORMATION
  Report Type: 
  Country: None (occurrence: None)
  Receive Date: 20071203
  Receipt Date: 20071128
  Transmission Date: 20080405
  Serious: Yes (Other)
  Sender: FDA-Public Use
  Company Number: B0497881A

PATIENT
  Sex: Female

DRUGS (1)
  1. FLUTIDE [Suspect]
     Route: 055

REACTIONS (1)
  - PSYCHOTIC DISORDER [None]
